FAERS Safety Report 9562086 (Version 1)
Quarter: 2013Q3

REPORT INFORMATION
  Report Type: Spontaneous
  Country: US (occurrence: None)
  Receive Date: 20130830
  Receipt Date: 20130830
  Transmission Date: 20140515
  Serious: Yes (Hospitalization)
  Sender: FDA-Public Use
  Company Number: AMAG201203117

PATIENT
  Age: 53 Year
  Sex: Male
  Weight: 93.9 kg

DRUGS (5)
  1. FERAHEME (FERUMOXYTOL) INJECTION, 510MG [Suspect]
     Indication: IRON DEFICIENCY ANAEMIA
     Route: 042
     Dates: start: 20120831, end: 20120831
  2. CARVEDILOL [Concomitant]
  3. MELATONIN [Concomitant]
  4. SODIUM BICARBONATE [Concomitant]
  5. REMICADE (INFLIXIMAB) [Concomitant]

REACTIONS (2)
  - Diarrhoea [None]
  - Abdominal pain [None]
